FAERS Safety Report 4758645-5 (Version None)
Quarter: 2005Q3

REPORT INFORMATION
  Report Type: 
  Country: None (occurrence: None)
  Receive Date: 20050826
  Receipt Date: 20050815
  Transmission Date: 20060218
  Serious: Yes (Other)
  Sender: FDA-Public Use
  Company Number: 2005116592

PATIENT
  Sex: Female

DRUGS (1)
  1. DEPO-CLINOVIR (MEDROXYPROGESTERONE ACETATE) [Suspect]
     Indication: CONTRACEPTION
     Dosage: INTRAMUSCULAR
     Dates: start: 20030101

REACTIONS (2)
  - ENDOMETRIAL HYPERTROPHY [None]
  - VAGINAL HAEMORRHAGE [None]
